FAERS Safety Report 14038070 (Version 1)
Quarter: 2017Q4

REPORT INFORMATION
  Report Type: Spontaneous
  Country: DE (occurrence: DE)
  Receive Date: 20171004
  Receipt Date: 20171004
  Transmission Date: 20180321
  Serious: Yes (Other)
  Sender: FDA-Public Use
  Company Number: DE-TORRENT-00007163

PATIENT
  Age: 28 Year
  Sex: Female
  Weight: 72 kg

DRUGS (5)
  1. CEFUROXIME. [Concomitant]
     Active Substance: CEFUROXIME
  2. SALBUTAMOL [Concomitant]
     Active Substance: ALBUTEROL
  3. ESCITALOPRAM [Suspect]
     Active Substance: ESCITALOPRAM OXALATE
  4. KADEFUNGIN [Concomitant]
     Active Substance: CLOTRIMAZOLE
  5. FOLSAURE [Concomitant]
     Active Substance: FOLIC ACID

REACTIONS (2)
  - Foetal death [Not Recovered/Not Resolved]
  - Exposure during pregnancy [Unknown]
